FAERS Safety Report 6874775-6 (Version None)
Quarter: 2010Q3

REPORT INFORMATION
  Report Type: 
  Country: None (occurrence: None)
  Receive Date: 20100723
  Receipt Date: 20100709
  Transmission Date: 20110219
  Serious: Yes (Other)
  Sender: FDA-Public Use
  Company Number: A-US2010-37546

PATIENT
  Age: 15 Year
  Sex: Female
  Weight: 47.1 kg

DRUGS (12)
  1. TRACLEER [Suspect]
     Indication: PULMONARY ARTERIAL HYPERTENSION
     Dosage: 125 MG, BID, ORAL ; 62.5 MG, BID ; 62.5 MG , BID ; 62.5 MG, BID
     Route: 048
     Dates: start: 20090501, end: 20090531
  2. TRACLEER [Suspect]
     Indication: PULMONARY ARTERIAL HYPERTENSION
     Dosage: 125 MG, BID, ORAL ; 62.5 MG, BID ; 62.5 MG , BID ; 62.5 MG, BID
     Route: 048
     Dates: start: 20090601, end: 20100615
  3. TRACLEER [Suspect]
     Indication: PULMONARY ARTERIAL HYPERTENSION
     Dosage: 125 MG, BID, ORAL ; 62.5 MG, BID ; 62.5 MG , BID ; 62.5 MG, BID
     Route: 048
     Dates: start: 20100616, end: 20100617
  4. TYLENOL W/ CODEINE NO. 3 [Suspect]
     Indication: PRODUCT USED FOR UNKNOWN INDICATION
  5. SILDENAFIL CITRATE [Concomitant]
  6. DIGOXIN [Concomitant]
  7. LASIX [Concomitant]
  8. SPIRONOLACTONE [Concomitant]
  9. ASPIRIN [Concomitant]
  10. NEXIUM IV [Concomitant]
  11. AMITRIPTYLINE (AMITRIPTYLINE PAMOATE) [Concomitant]
  12. LORATADINE [Concomitant]

REACTIONS (5)
  - ALANINE AMINOTRANSFERASE INCREASED [None]
  - ASPARTATE AMINOTRANSFERASE INCREASED [None]
  - LOWER LIMB FRACTURE [None]
  - NAUSEA [None]
  - OFF LABEL USE [None]
